FAERS Safety Report 8571113-8 (Version None)
Quarter: 2012Q3

REPORT INFORMATION
  Report Type: 
  Country: None (occurrence: None)
  Receive Date: 20120806
  Receipt Date: 20120731
  Transmission Date: 20120928
  Serious: No
  Sender: FDA-Public Use
  Company Number: US-PFIZER INC-2012185947

PATIENT
  Age: 47 Year
  Sex: Female
  Weight: 95 kg

DRUGS (2)
  1. ADVIL CONGESTION RELIEF [Suspect]
  2. ADVIL CONGESTION RELIEF [Suspect]
     Indication: SINUS HEADACHE
     Dosage: 200/10 MG, UNK
     Route: 048
     Dates: start: 20120731

REACTIONS (1)
  - DRUG EFFECT DECREASED [None]
